FAERS Safety Report 26047954 (Version 1)
Quarter: 2025Q4

REPORT INFORMATION
  Report Type: Report from Study
  Country: BR (occurrence: BR)
  Receive Date: 20251114
  Receipt Date: 20251114
  Transmission Date: 20260119
  Serious: Yes (Other)
  Sender: TAKEDA
  Company Number: BR-TAKEDA-2025TUS101356

PATIENT
  Sex: Male

DRUGS (3)
  1. HUMAN IMMUNOGLOBULIN G\HYALURONIDASE RECOMBINANT HUMAN [Suspect]
     Active Substance: HUMAN IMMUNOGLOBULIN G\HYALURONIDASE (HUMAN RECOMBINANT)
     Indication: Immunodeficiency
     Dosage: UNK UNK, Q4WEEKS
  2. PNEUMOCOCCAL VACCINE NOS [Suspect]
     Active Substance: PNEUMOCOCCAL VACCINE
     Indication: Product used for unknown indication
     Dosage: UNK
  3. PNEUMOCOCCAL VACCINE NOS [Suspect]
     Active Substance: PNEUMOCOCCAL VACCINE
     Dosage: UNK

REACTIONS (13)
  - Growth retardation [Unknown]
  - Ear infection [Unknown]
  - Infection [Unknown]
  - Purulent discharge [Unknown]
  - Weight gain poor [Unknown]
  - Pathogen resistance [Unknown]
  - Vaccination failure [Unknown]
  - Respiratory tract infection [Unknown]
  - Sinusitis [Unknown]
  - Haemophilus infection [Unknown]
  - Moraxella infection [Unknown]
  - Streptococcus test positive [Unknown]
  - Beta haemolytic streptococcal infection [Unknown]
